FAERS Safety Report 7950065-5 (Version None)
Quarter: 2011Q4

REPORT INFORMATION
  Report Type: 
  Country: None (occurrence: None)
  Receive Date: 20111130
  Receipt Date: 20111006
  Transmission Date: 20120403
  Serious: Yes (Hospitalization, Disabling, Other)
  Sender: FDA-Public Use
  Company Number: JP-ROCHE-431706

PATIENT
  Sex: Male

DRUGS (48)
  1. ACTEMRA [Suspect]
     Route: 041
     Dates: start: 20060119, end: 20060202
  2. ACTEMRA [Suspect]
     Route: 041
     Dates: start: 20081002, end: 20081002
  3. ACTEMRA [Suspect]
     Route: 041
     Dates: start: 20090115, end: 20090115
  4. ACTEMRA [Suspect]
     Route: 041
     Dates: start: 20090721, end: 20090721
  5. PREDNISOLONE AND PREDNISOLONE ACETATE AND PREDNISOLONE SODIUM SUCCINAT [Suspect]
     Route: 048
     Dates: start: 20090812, end: 20090815
  6. PREDNISOLONE AND PREDNISOLONE ACETATE AND PREDNISOLONE SODIUM SUCCINAT [Suspect]
     Route: 048
     Dates: start: 20090830, end: 20090913
  7. ALENDRONATE SODIUM [Concomitant]
     Dosage: DRUG: BONALON 35 MG
     Route: 048
  8. CLARITHROMYCIN [Concomitant]
     Dosage: FORM: PERORAL AGENT
     Route: 048
  9. ACTEMRA [Suspect]
     Route: 041
     Dates: start: 20081016, end: 20081027
  10. ACTEMRA [Suspect]
     Route: 041
     Dates: start: 20090501, end: 20090625
  11. PREDNISOLONE AND PREDNISOLONE ACETATE AND PREDNISOLONE SODIUM SUCCINAT [Suspect]
     Indication: CASTLEMAN'S DISEASE
     Route: 048
     Dates: start: 20090807, end: 20090811
  12. PREDNISOLONE AND PREDNISOLONE ACETATE AND PREDNISOLONE SODIUM SUCCINAT [Suspect]
     Route: 048
  13. SULFAMETHOXAZOLE AND TRIMETHOPRIM [Concomitant]
     Route: 048
     Dates: start: 20090815, end: 20090925
  14. ACTEMRA [Suspect]
     Indication: CASTLEMAN'S DISEASE
     Route: 041
     Dates: start: 20011009, end: 20051222
  15. ACTEMRA [Suspect]
     Route: 041
  16. POVIDONE IODINE [Concomitant]
     Dosage: FORM: GARGLE. DRUG NAME REPORTED AS ISODINE GARGLE.ROUTE: OROPHARINGEAL NOTE: DOSAGE ADJUSTED.
     Route: 050
  17. AMLODIPINE [Concomitant]
     Route: 048
  18. INFLUENZA VACCINE [Concomitant]
     Dosage: ROUTE: INJECTABLE (NOS).
     Route: 050
     Dates: start: 20051027, end: 20051027
  19. ISODINE [Concomitant]
     Dosage: ROUTE: OROPHARNGEAL, FORM: GARGLE.
     Route: 050
  20. HOKUNALIN [Concomitant]
     Dosage: FORM: TAPE
     Route: 062
  21. ZOVIRAX [Concomitant]
     Route: 048
  22. ACTEMRA [Suspect]
     Route: 041
     Dates: start: 20090806, end: 20090806
  23. ALFAROL [Concomitant]
     Route: 048
  24. PERSANTIN [Concomitant]
     Dosage: FORM: SUSTAINED RELEASE CAPSULE.
     Route: 048
  25. METHYLPREDNISOLONE SODIUM SUCCINATE [Concomitant]
     Route: 041
     Dates: start: 20090804, end: 20090806
  26. SPIRIVA [Concomitant]
     Dosage: DOSE FORM: RESPIRATORY TONIC
     Route: 055
  27. OMEPRAZOLE [Concomitant]
     Route: 048
  28. ACTEMRA [Suspect]
     Route: 041
     Dates: start: 20081107, end: 20081218
  29. ACTEMRA [Suspect]
     Route: 041
     Dates: start: 20090127, end: 20090127
  30. ALENDRONATE SODIUM [Concomitant]
     Dosage: STRENGTH: 5 MG
     Route: 048
     Dates: start: 20051223, end: 20060206
  31. ALFAROL [Concomitant]
     Route: 048
  32. ALENDRONATE SODIUM [Concomitant]
     Dosage: DRUG NAME: FOSAMAC
     Route: 048
  33. MUCOSIL-10 [Concomitant]
     Dosage: FORM: PERORAL AGENT
     Route: 048
  34. PURSENNID [Concomitant]
     Route: 048
  35. ACTEMRA [Suspect]
     Route: 041
     Dates: start: 20090108, end: 20090108
  36. ACTEMRA [Suspect]
     Route: 041
     Dates: start: 20090205, end: 20090402
  37. ACTEMRA [Suspect]
     Route: 041
  38. PREDNISOLONE AND PREDNISOLONE ACETATE AND PREDNISOLONE SODIUM SUCCINAT [Suspect]
     Route: 048
     Dates: start: 20090816, end: 20090829
  39. PREDNISOLONE AND PREDNISOLONE ACETATE AND PREDNISOLONE SODIUM SUCCINAT [Suspect]
     Route: 048
     Dates: start: 20090914, end: 20091203
  40. FERROUS CITRATE [Concomitant]
     Route: 048
     Dates: start: 20041112, end: 20060202
  41. MICARDIS [Concomitant]
     Route: 048
  42. NEUROTROPIN [Concomitant]
     Dosage: DRUG: AN EXTRACT OBTAINED FROM INFLAMMATORY RABBIT SKIN
     Route: 048
  43. BACTRIM [Concomitant]
     Route: 048
  44. PREDNISOLONE AND PREDNISOLONE ACETATE AND PREDNISOLONE SODIUM SUCCINAT [Suspect]
     Route: 048
     Dates: start: 20091204, end: 20100114
  45. PREDNISOLONE AND PREDNISOLONE ACETATE AND PREDNISOLONE SODIUM SUCCINAT [Suspect]
     Route: 048
     Dates: start: 20100115, end: 20100506
  46. PREDNISOLONE AND PREDNISOLONE ACETATE AND PREDNISOLONE SODIUM SUCCINAT [Suspect]
     Route: 048
     Dates: start: 20100507, end: 20100916
  47. ALFACALCIDOL [Concomitant]
     Route: 048
  48. GOSHA-JINKI-GAN [Concomitant]
     Dosage: DOSE FORM: PERORAL AGENT
     Route: 048

REACTIONS (18)
  - PROTEIN URINE PRESENT [None]
  - NEOPLASM OF ORBIT [None]
  - NEUTROPHIL COUNT DECREASED [None]
  - BLOOD PHOSPHORUS DECREASED [None]
  - CONSTIPATION [None]
  - HERPES ZOSTER [None]
  - STOMATITIS [None]
  - PAIN IN EXTREMITY [None]
  - RASH [None]
  - DIARRHOEA [None]
  - UPPER RESPIRATORY TRACT INFLAMMATION [None]
  - OEDEMA PERIPHERAL [None]
  - HAEMATURIA [None]
  - BLOOD BILIRUBIN INCREASED [None]
  - LYMPHOCYTE MORPHOLOGY ABNORMAL [None]
  - HYPERURICAEMIA [None]
  - PNEUMONIA [None]
  - DERMAL CYST [None]
